FAERS Safety Report 10111360 (Version 1)
Quarter: 2014Q2

REPORT INFORMATION
  Report Type: Spontaneous
  Country: US (occurrence: None)
  Receive Date: 20140421
  Receipt Date: 20140421
  Transmission Date: 20141212
  Serious: Yes (Other)
  Sender: FDA-Public Use
  Company Number: AEGR000281

PATIENT
  Age: 67 Year
  Sex: Male
  Weight: 75.7 kg

DRUGS (3)
  1. JUXTAPID (LOMITAPIDE) CAPSULE, 5MG [Suspect]
     Indication: TYPE IIA HYPERLIPIDAEMIA
     Route: 048
     Dates: start: 201307
  2. TOPROL (METOPROLOL SUCCINATE) [Concomitant]
  3. ALTACE (RAMIPRIL) [Concomitant]

REACTIONS (2)
  - Diarrhoea [None]
  - Fatigue [None]
